FAERS Safety Report 8447467-X (Version None)
Quarter: 2012Q2

REPORT INFORMATION
  Report Type: 
  Country: None (occurrence: None)
  Receive Date: 20120613
  Receipt Date: 20120613
  Transmission Date: 20120825
  Serious: Yes (Hospitalization)
  Sender: FDA-Public Use
  Company Number: None

PATIENT
  Sex: Female
  Weight: 118 kg

DRUGS (6)
  1. METHOTREXATE [Suspect]
     Dosage: 15 MG
     Dates: end: 20120518
  2. PREDNISONE TAB [Suspect]
     Dosage: 2145 MG
  3. CYTARABINE [Suspect]
     Dosage: 70 MG
     Dates: end: 20120509
  4. VINCRISTINE SULFATE [Suspect]
     Dosage: 6 MG
     Dates: end: 20120607
  5. PEG-L-ASPARAGINASE (PEGASPARGASE, ONCOSPAR) [Suspect]
     Dosage: 5275 UNIT
     Dates: end: 20120514
  6. DAUNORUBICIN HCL [Suspect]
     Dosage: 171.9 MG
     Dates: end: 20120607

REACTIONS (4)
  - HAEMORRHAGE INTRACRANIAL [None]
  - PULMONARY EMBOLISM [None]
  - RESPIRATORY DISTRESS [None]
  - RESPIRATORY TRACT OEDEMA [None]
